FAERS Safety Report 10956552 (Version 1)
Quarter: 2015Q1

REPORT INFORMATION
  Report Type: Spontaneous
  Country: US (occurrence: None)
  Receive Date: 20150325
  Receipt Date: 20150325
  Transmission Date: 20150721
  Serious: Yes (Life-Threatening, Hospitalization)
  Sender: FDA-Public Use
  Company Number: None

PATIENT
  Age: 67 Year
  Sex: Male
  Weight: 98.7 kg

DRUGS (2)
  1. DAPSONE 50 MG, 100 MG UNKNOWN [Suspect]
     Active Substance: DAPSONE
     Indication: PROPHYLAXIS
     Dosage: 2 CAPSULES, 4 CAPSULES
     Route: 048
     Dates: start: 20150123, end: 20150204
  2. DAPSONE 50 MG, 100 MG UNKNOWN [Suspect]
     Active Substance: DAPSONE
     Indication: PNEUMOCYSTIS JIROVECII PNEUMONIA
     Dosage: 2 CAPSULES, 4 CAPSULES
     Route: 048
     Dates: start: 20150123, end: 20150204

REACTIONS (2)
  - Lung transplant [None]
  - Blood methaemoglobin present [None]

NARRATIVE: CASE EVENT DATE: 20150204
